FAERS Safety Report 8275021-1 (Version None)
Quarter: 2012Q2

REPORT INFORMATION
  Report Type: 
  Country: None (occurrence: None)
  Receive Date: 20120411
  Receipt Date: 20120403
  Transmission Date: 20120825
  Serious: Yes (Other)
  Sender: FDA-Public Use
  Company Number: US-ELI_LILLY_AND_COMPANY-US201204001920

PATIENT
  Age: 55 Year
  Sex: Male

DRUGS (3)
  1. EFFIENT [Suspect]
     Dosage: MAINTANENCE
     Route: 048
  2. ANGIOMAX [Concomitant]
     Indication: PERCUTANEOUS CORONARY INTERVENTION
     Dosage: UNK
     Dates: start: 20120301, end: 20120301
  3. EFFIENT [Suspect]
     Indication: PERCUTANEOUS CORONARY INTERVENTION
     Dosage: 60 MG, SINGLE LOADING DOSE
     Route: 048
     Dates: start: 20120301

REACTIONS (1)
  - THROMBOSIS IN DEVICE [None]
